FAERS Safety Report 25006167 (Version 3)
Quarter: 2025Q2

REPORT INFORMATION
  Report Type: Spontaneous
  Country: JP (occurrence: JP)
  Receive Date: 20250224
  Receipt Date: 20250417
  Transmission Date: 20250717
  Serious: Yes (Death)
  Sender: RIGEL PHARMACEUTICALS
  Company Number: JP-RIGEL Pharmaceuticals INC- 20250200137

PATIENT
  Age: 83 Year

DRUGS (9)
  1. TAVALISSE [Suspect]
     Active Substance: FOSTAMATINIB
     Indication: Immune thrombocytopenia
     Route: 048
  2. TAVALISSE [Suspect]
     Active Substance: FOSTAMATINIB
     Dosage: UNK
     Route: 048
     Dates: start: 20230906, end: 202406
  3. VYVGART [Concomitant]
     Active Substance: EFGARTIGIMOD ALFA-FCAB
     Indication: Product used for unknown indication
     Route: 041
     Dates: start: 202406
  4. VYVGART [Concomitant]
     Active Substance: EFGARTIGIMOD ALFA-FCAB
     Dosage: UNK, QOW
     Route: 041
  5. ELTROMBOPAG OLAMINE [Concomitant]
     Active Substance: ELTROMBOPAG OLAMINE
     Indication: Product used for unknown indication
     Dosage: 25 MG, QD
     Route: 048
  6. PREDNISOLONE [Concomitant]
     Active Substance: PREDNISOLONE
     Indication: Product used for unknown indication
     Dosage: 30 MG, QD
     Route: 065
  7. PREDNISOLONE [Concomitant]
     Active Substance: PREDNISOLONE
     Dosage: 40 MG, QD
     Route: 065
  8. PREDNISOLONE [Concomitant]
     Active Substance: PREDNISOLONE
     Dosage: 25 MG, QD
     Route: 065
  9. PREDNISOLONE [Concomitant]
     Active Substance: PREDNISOLONE
     Dosage: 20 MG, QD
     Route: 065

REACTIONS (3)
  - Bacteraemia [Fatal]
  - Pneumonia [Fatal]
  - Cytomegalovirus test positive [Recovered/Resolved]

NARRATIVE: CASE EVENT DATE: 20230925
